FAERS Safety Report 14477720 (Version 1)
Quarter: 2018Q1

REPORT INFORMATION
  Report Type: Spontaneous
  Country: PL (occurrence: PL)
  Receive Date: 20180201
  Receipt Date: 20180201
  Transmission Date: 20180509
  Serious: No
  Sender: FDA-Public Use
  Company Number: PL-IPSEN-CABO-17009687

PATIENT
  Age: 61 Year
  Sex: Male

DRUGS (2)
  1. CABOMETYX [Suspect]
     Active Substance: CABOZANTINIB S-MALATE
     Dosage: 60 MG, QD
     Route: 048
     Dates: start: 20161206, end: 20170427
  2. CABOMETYX [Suspect]
     Active Substance: CABOZANTINIB S-MALATE
     Dosage: 60 MG, QD
     Route: 048
     Dates: start: 20170509

REACTIONS (4)
  - Fatigue [Unknown]
  - Oropharyngeal pain [Unknown]
  - Aphonia [Unknown]
  - Eating disorder [Unknown]
